FAERS Safety Report 11473631 (Version 2)
Quarter: 2015Q3

REPORT INFORMATION
  Report Type: Spontaneous
  Country: US (occurrence: US)
  Receive Date: 20150908
  Receipt Date: 20150924
  Transmission Date: 20151125
  Serious: Yes (Other)
  Sender: FDA-Public Use
  Company Number: US-INCYTE CORPORATION-2015IN004378

PATIENT
  Age: 79 Year
  Sex: Female

DRUGS (5)
  1. JAKAFI [Suspect]
     Active Substance: RUXOLITINIB
     Dosage: 15 MG, BID
     Route: 048
     Dates: start: 20150710
  2. ASPIRIN. [Concomitant]
     Active Substance: ASPIRIN
  3. ANAGRELIDE [Concomitant]
     Active Substance: ANAGRELIDE
  4. MULTIVITAMINS [Concomitant]
     Active Substance: VITAMINS
  5. JAKAFI [Suspect]
     Active Substance: RUXOLITINIB
     Indication: MYELOFIBROSIS
     Dosage: 15 MG, BID
     Route: 048
     Dates: start: 20150606, end: 20150826

REACTIONS (2)
  - Pulmonary embolism [Unknown]
  - Dizziness [Unknown]

NARRATIVE: CASE EVENT DATE: 20150826
